FAERS Safety Report 9113066 (Version 1)
Quarter: 2013Q1

REPORT INFORMATION
  Report Type: Spontaneous
  Country: DE (occurrence: DE)
  Receive Date: 20130211
  Receipt Date: 20130211
  Transmission Date: 20140127
  Serious: Yes (Other)
  Sender: FDA-Public Use
  Company Number: DE-PFIZER INC-2013049292

PATIENT
  Age: 21 Year
  Sex: Male
  Weight: 90 kg

DRUGS (3)
  1. CLARITHROMYCIN [Suspect]
     Dosage: UNK
     Route: 065
     Dates: start: 20130128, end: 20130128
  2. PANTOPRAZOLE [Suspect]
     Dosage: UNK
     Route: 065
     Dates: start: 20130128, end: 20130128
  3. AMOXICILLIN [Suspect]
     Dosage: UNK
     Route: 065
     Dates: start: 20130128, end: 20130128

REACTIONS (1)
  - Diarrhoea haemorrhagic [Unknown]
